FAERS Safety Report 5373582-3 (Version None)
Quarter: 2007Q2

REPORT INFORMATION
  Report Type: 
  Country: None (occurrence: None)
  Receive Date: 20070628
  Receipt Date: 20070410
  Transmission Date: 20071010
  Serious: No
  Sender: FDA-Public Use
  Company Number: US-BAUSCH-2007BL001157

PATIENT
  Age: 54 Year
  Sex: Female

DRUGS (4)
  1. ZYLET [Suspect]
     Indication: EYE ALLERGY
     Route: 047
     Dates: start: 20061208, end: 20061208
  2. SYSTANE [Concomitant]
     Indication: KERATOCONJUNCTIVITIS SICCA
     Route: 047
  3. PATANOL [Concomitant]
     Route: 047
  4. RESTASIS [Concomitant]
     Indication: KERATOCONJUNCTIVITIS SICCA
     Route: 047

REACTIONS (1)
  - EYE PAIN [None]
